FAERS Safety Report 18801520 (Version 2)
Quarter: 2021Q1

REPORT INFORMATION
  Report Type: Spontaneous
  Country: DE (occurrence: DE)
  Receive Date: 20210128
  Receipt Date: 20210211
  Transmission Date: 20210419
  Serious: Yes (Hospitalization, Other)
  Sender: FDA-Public Use
  Company Number: DE-SA-2021SA023209

PATIENT
  Age: 67 Year
  Sex: Male

DRUGS (2)
  1. SEVELAMER SALT NOT SPECIFIED [Suspect]
     Active Substance: SEVELAMER
     Indication: HYPERPHOSPHATAEMIA
     Dosage: 1600 MG, QD
     Route: 048
     Dates: start: 201902
  2. SEVELAMER SALT NOT SPECIFIED [Suspect]
     Active Substance: SEVELAMER
     Dosage: 800 MG, TID
     Route: 048
     Dates: start: 201903, end: 2019

REACTIONS (7)
  - Neutrophil extracellular trap formation [Recovered/Resolved]
  - Large intestinal ulcer [Recovered/Resolved]
  - Crystal deposit intestine [Recovered/Resolved]
  - Peritonitis [Recovered/Resolved]
  - Abdominal pain [Recovered/Resolved]
  - Gastrointestinal necrosis [Recovered/Resolved]
  - Large intestine perforation [Recovered/Resolved]

NARRATIVE: CASE EVENT DATE: 201904
